FAERS Safety Report 8774620 (Version 3)
Quarter: 2012Q4

REPORT INFORMATION
  Report Type: Report from Study
  Country: US (occurrence: US)
  Receive Date: 20120907
  Receipt Date: 20121129
  Transmission Date: 20130627
  Serious: Yes (Hospitalization)
  Sender: FDA-Public Use
  Company Number: US-BRISTOL-MYERS SQUIBB COMPANY-16910176

PATIENT
  Age: 51 Year
  Sex: Female
  Weight: 93.5 kg

DRUGS (1)
  1. ERBITUX [Suspect]
     Indication: HEAD AND NECK CANCER
     Dosage: Loading dose: 400mg/m2 once 250 mg/m2 daily. Courses:2,18Jul-07Aug12
24Aug-09Oct12:1510mg
     Dates: start: 20120718

REACTIONS (6)
  - Hypotension [Recovered/Resolved with Sequelae]
  - Stomatitis [Recovered/Resolved with Sequelae]
  - Pyrexia [Recovered/Resolved with Sequelae]
  - Malaise [Recovered/Resolved with Sequelae]
  - Dehydration [Recovered/Resolved with Sequelae]
  - Wound infection [Recovered/Resolved with Sequelae]
